FAERS Safety Report 9856452 (Version 1)
Quarter: 2014Q1

REPORT INFORMATION
  Report Type: Spontaneous
  Country: IT (occurrence: IT)
  Receive Date: 20140130
  Receipt Date: 20140130
  Transmission Date: 20141002
  Serious: Yes (Life-Threatening, Hospitalization, Other)
  Sender: FDA-Public Use
  Company Number: IT-JNJFOC-20140113050

PATIENT
  Sex: 0

DRUGS (10)
  1. DOXORUBICIN [Suspect]
     Indication: EWING^S SARCOMA
     Dosage: 40 MG/M2/DIE INTRAVENOUS IN 4 HOURS, DAYS 1-2
     Route: 042
  2. VINCRISTINE [Suspect]
     Indication: EWING^S SARCOMA
     Dosage: TOP DOSE 2 MG
     Route: 042
  3. CYCLOPHOSPHAMIDE [Suspect]
     Indication: EWING^S SARCOMA
     Dosage: IN 30 MINUTES WITH MESNA EQUIMOLAR DOSE
     Route: 042
  4. RADIOTHERAPY [Suspect]
     Indication: EWING^S SARCOMA
     Route: 065
  5. IFOSFAMIDE [Suspect]
     Indication: EWING^S SARCOMA
     Dosage: 3 G/M2/DIE DAYS 1-2-3 WITH 2000 ML/M2/24 HOUR OF BASAL SOLUTION AND MESNA EUIMOLAR DOSE
     Route: 022
  6. DACTINOMYCIN [Suspect]
     Indication: EWING^S SARCOMA
     Dosage: TOP DOSE 2 MG
     Route: 042
  7. ETOPOSIDE [Suspect]
     Indication: EWING^S SARCOMA
     Dosage: 150 MG/M2/DIE IN 2 HOURS AT DAYS 1?2?3;??200 MG/M2/DIE I.V IN 2 HOURS AT DAYS 2-3-4
     Route: 042
  8. MESNA [Suspect]
     Indication: EWING^S SARCOMA
     Dosage: 200 MG/M2/DIE I.V IN 2 HOURS AT DAYS 2-3-4
     Route: 065
  9. MELPHALAN [Suspect]
     Indication: EWING^S SARCOMA
     Dosage: IN 1 HOUR GIVEN AS LAST CYCLE
     Route: 042
  10. BUSULFAN [Suspect]
     Indication: EWING^S SARCOMA
     Dosage: 4 MG/KG/DIE IN 4 DAYS IN FOUR DOSES PER DAY GIVEN AS LAST CYCLE
     Route: 048

REACTIONS (10)
  - Leukopenia [Unknown]
  - Red blood cell count decreased [Unknown]
  - Febrile neutropenia [Unknown]
  - Thrombocytopenia [Unknown]
  - Haematotoxicity [Unknown]
  - Stomatitis [Unknown]
  - Bone marrow toxicity [Unknown]
  - Ewing^s sarcoma [Unknown]
  - Hospitalisation [Unknown]
  - Off label use [Unknown]
